FAERS Safety Report 8802080 (Version 1)
Quarter: 2012Q4

REPORT INFORMATION
  Report Type: 
  Country: JP (occurrence: JP)
  Receive Date: 20120921
  Receipt Date: 20120921
  Transmission Date: 20130627
  Serious: Yes (Other)
  Sender: FDA-Public Use
  Company Number: JP-SANOFI-AVENTIS-2012SA067540

PATIENT
  Age: 67 Year
  Sex: Male

DRUGS (1)
  1. DOCETAXEL [Suspect]
     Indication: EXTRAMAMMARY PAGET^S DISEASE
     Route: 065

REACTIONS (4)
  - Hypoalbuminaemia [Unknown]
  - Pleural effusion [Not Recovered/Not Resolved]
  - Respiratory distress [Not Recovered/Not Resolved]
  - Oedema peripheral [Unknown]
